FAERS Safety Report 7844122-1 (Version None)
Quarter: 2011Q4

REPORT INFORMATION
  Report Type: 
  Country: None (occurrence: None)
  Receive Date: 20111025
  Receipt Date: 20111006
  Transmission Date: 20120403
  Serious: Yes (Other)
  Sender: FDA-Public Use
  Company Number: TR-BAYER-2011-095995

PATIENT
  Sex: Female

DRUGS (2)
  1. ASPIRIN [Suspect]
     Indication: CONGENITAL HYPERCOAGULATION
  2. HEPARIN [Suspect]
     Indication: CONGENITAL HYPERCOAGULATION

REACTIONS (1)
  - ABORTION [None]
